FAERS Safety Report 9293181 (Version 1)
Quarter: 2013Q2

REPORT INFORMATION
  Report Type: Spontaneous
  Country: FR (occurrence: FR)
  Receive Date: 20130516
  Receipt Date: 20130516
  Transmission Date: 20140414
  Serious: Yes (Hospitalization, Disabling, Other)
  Sender: FDA-Public Use
  Company Number: FR-PFIZER INC-2013147364

PATIENT
  Age: 58 Year
  Sex: Male

DRUGS (7)
  1. ADVIL [Suspect]
     Indication: PYREXIA
     Dosage: UNK
     Route: 048
     Dates: start: 201302, end: 20130215
  2. ADVIL [Suspect]
     Indication: COUGH
     Dosage: BETWEEN 3 AND 6 TABLETS
     Route: 048
     Dates: start: 20130216, end: 20130223
  3. ADVIL [Suspect]
     Dosage: UNK
     Route: 048
     Dates: start: 20130224, end: 201302
  4. AUGMENTIN [Suspect]
     Indication: PYREXIA
     Dosage: UNK
     Route: 048
     Dates: start: 20130216, end: 20130223
  5. AUGMENTIN [Suspect]
     Indication: COUGH
  6. CIFLOX [Suspect]
     Indication: PYREXIA
     Dosage: UNK
     Route: 048
     Dates: start: 20130216, end: 20130223
  7. CIFLOX [Suspect]
     Indication: COUGH

REACTIONS (2)
  - Tubulointerstitial nephritis [Unknown]
  - Renal failure [Unknown]
